FAERS Safety Report 24680481 (Version 1)
Quarter: 2024Q4

REPORT INFORMATION
  Report Type: Spontaneous
  Country: GB (occurrence: GB)
  Receive Date: 20241129
  Receipt Date: 20241129
  Transmission Date: 20250114
  Serious: Yes (Other)
  Sender: JOHNSON AND JOHNSON
  Company Number: GB-MHRA-TPP10301108C8656300YC1731679610779

PATIENT
  Age: 20 Year
  Sex: Male
  Weight: 32 kg

DRUGS (6)
  1. TOPIRAMATE [Suspect]
     Active Substance: TOPIRAMATE
     Indication: Ill-defined disorder
     Dosage: INITIALLY 25 MG ONCE DAILY FOR 1 WEEK, DOSE TO ...
     Route: 048
     Dates: start: 20240910
  2. SUMATRIPTAN [Concomitant]
     Active Substance: SUMATRIPTAN
     Indication: Ill-defined disorder
     Dosage: ONE SPRAY IN ONE NOSTRIL
     Route: 045
     Dates: start: 20240903, end: 20240910
  3. FOLIC ACID [Concomitant]
     Active Substance: FOLIC ACID
     Indication: Ill-defined disorder
     Dosage: TAKE ONE DAILY
     Dates: start: 20240910
  4. INDOMETHACIN [Concomitant]
     Active Substance: INDOMETHACIN
     Indication: Ill-defined disorder
     Dosage: TAKE ONE 3 TIMES/DAY
     Dates: start: 20241003, end: 20241031
  5. LANSOPRAZOLE [Concomitant]
     Active Substance: LANSOPRAZOLE
     Indication: Ill-defined disorder
     Dosage: TAKE ONE ONCE DAILY
     Dates: start: 20240924, end: 20241022
  6. ENGERIX-B [Concomitant]
     Active Substance: HEPATITIS B VIRUS SUBTYPE ADW2 HBSAG SURFACE PROTEIN ANTIGEN
     Indication: Ill-defined disorder
     Dosage: 20 MICROGRAMS  FOR 1 DOSE , TO BE ADMINISTERED ...
     Dates: start: 20241025, end: 20241026

REACTIONS (1)
  - Maximum heart rate increased [Recovered/Resolved]

NARRATIVE: CASE EVENT DATE: 20240919
